FAERS Safety Report 12069275 (Version 1)
Quarter: 2016Q1

REPORT INFORMATION
  Report Type: Spontaneous
  Country: US (occurrence: US)
  Receive Date: 20160211
  Receipt Date: 20160211
  Transmission Date: 20160526
  Serious: No
  Sender: FDA-Public Use
  Company Number: US-009507513-1602USA005365

PATIENT
  Age: 42 Year
  Sex: Female

DRUGS (3)
  1. MENOPUR [Concomitant]
     Active Substance: FOLLICLE STIMULATING HORMONE BETA POLYPEPTIDE\LUTROPIN ALFA
     Dosage: UNKNOWN
  2. DEXAMETHASONE. [Concomitant]
     Active Substance: DEXAMETHASONE
     Dosage: UNKNOWN
  3. FOLLISTIM [Suspect]
     Active Substance: FOLLITROPIN
     Indication: ASSISTED FERTILISATION
     Dosage: 150 IU, QD
     Route: 058
     Dates: start: 201602

REACTIONS (2)
  - Headache [Not Recovered/Not Resolved]
  - Dyspnoea [Not Recovered/Not Resolved]

NARRATIVE: CASE EVENT DATE: 201602
